FAERS Safety Report 16589627 (Version 1)
Quarter: 2019Q3

REPORT INFORMATION
  Report Type: Spontaneous
  Country: US (occurrence: US)
  Receive Date: 20190717
  Receipt Date: 20190717
  Transmission Date: 20191004
  Serious: Yes (Other)
  Sender: FDA-Public Use
  Company Number: None

PATIENT
  Age: 85 Year
  Sex: Female
  Weight: 78.75 kg

DRUGS (4)
  1. PREDNISONE. [Suspect]
     Active Substance: PREDNISONE
     Indication: ASTHMA
     Dosage: ?          OTHER FREQUENCY:ASTHMA TAPER;?
     Route: 048
     Dates: start: 20190716
  2. MONTELUKAST [Concomitant]
     Active Substance: MONTELUKAST SODIUM
  3. SIMVASTATIN. [Concomitant]
     Active Substance: SIMVASTATIN
  4. ALPRAZOLAM. [Concomitant]
     Active Substance: ALPRAZOLAM

REACTIONS (2)
  - Hypersensitivity [None]
  - Pharyngeal swelling [None]

NARRATIVE: CASE EVENT DATE: 20190716
